FAERS Safety Report 8605604-8 (Version None)
Quarter: 2012Q3

REPORT INFORMATION
  Report Type: 
  Country: None (occurrence: None)
  Receive Date: 20120820
  Receipt Date: 20120810
  Transmission Date: 20120928
  Serious: Yes (Life-Threatening)
  Sender: FDA-Public Use
  Company Number: AU-SANOFI-AVENTIS-2012SA058694

PATIENT
  Sex: Male

DRUGS (5)
  1. ENOXAPARIN SODIUM [Suspect]
     Route: 065
  2. DOXEPIN HCL [Suspect]
     Route: 065
  3. QUETIAPINE [Suspect]
     Route: 065
  4. LANTUS [Suspect]
     Route: 065
  5. CYMBALTA [Suspect]
     Route: 065

REACTIONS (9)
  - CONGENITAL ANOMALY [None]
  - YAWNING [None]
  - NEONATAL RESPIRATORY DISTRESS SYNDROME [None]
  - DRUG WITHDRAWAL SYNDROME [None]
  - SOMNOLENCE [None]
  - SYNDACTYLY [None]
  - FOETAL EXPOSURE DURING PREGNANCY [None]
  - REFLEXES ABNORMAL [None]
  - SNEEZING [None]
